FAERS Safety Report 7019807-X (Version None)
Quarter: 2010Q3

REPORT INFORMATION
  Report Type: 
  Country: None (occurrence: None)
  Receive Date: 20100909
  Receipt Date: 20100521
  Transmission Date: 20110219
  Serious: No
  Sender: FDA-Public Use
  Company Number: 2010SP028462

PATIENT
  Age: 50 Year
  Sex: Male

DRUGS (5)
  1. SAPHRIS [Suspect]
     Indication: PRODUCT USED FOR UNKNOWN INDICATION
     Dosage: 10 MG ; QD ; SL
     Route: 060
  2. GEODON [Concomitant]
  3. DEPAKOTE ER [Concomitant]
  4. INDERAL [Concomitant]
  5. PAXIL CR [Concomitant]

REACTIONS (1)
  - GLOSSODYNIA [None]
